FAERS Safety Report 5517745-2 (Version None)
Quarter: 2007Q4

REPORT INFORMATION
  Report Type: 
  Country: None (occurrence: None)
  Receive Date: 20071113
  Receipt Date: 20071031
  Transmission Date: 20080405
  Serious: Yes (Other)
  Sender: FDA-Public Use
  Company Number: CHPA2007US11528

PATIENT
  Age: 47 Year
  Sex: Female

DRUGS (6)
  1. CALCIUM CARBONATE (NCH)(CALCIUM CARBONATE) UNKNOWN [Suspect]
     Dosage: 500 MG,TID;
  2. CALCIUM CARBONATE,CHOLECALCIFEROL (NCH)(CHOLECALCIFEROL, CALCIUM CARBO [Suspect]
     Dosage: 500 MG/200 IU, TID,
  3. ALENDRONATE SODIUM [Suspect]
     Dosage: 70 MG, QW,
  4. RALOXIFENE HCL [Suspect]
     Dosage: 60 MG, QD;
  5. RISPERIDONE [Concomitant]
  6. LEVOTHYROXINE SODIUM [Concomitant]

REACTIONS (10)
  - ABDOMINAL PAIN [None]
  - ANOREXIA [None]
  - BLOOD PARATHYROID HORMONE DECREASED [None]
  - BLOOD POTASSIUM DECREASED [None]
  - BLOOD SODIUM INCREASED [None]
  - CONSTIPATION [None]
  - HYPERCALCAEMIA [None]
  - LETHARGY [None]
  - MILK-ALKALI SYNDROME [None]
  - RENAL IMPAIRMENT [None]
